FAERS Safety Report 7060256-6 (Version None)
Quarter: 2010Q4

REPORT INFORMATION
  Report Type: 
  Country: None (occurrence: None)
  Receive Date: 20101025
  Receipt Date: 20101021
  Transmission Date: 20110411
  Serious: Yes (Death, Life-Threatening, Hospitalization)
  Sender: FDA-Public Use
  Company Number: GB-BRISTOL-MYERS SQUIBB COMPANY-15206980

PATIENT
  Age: 57 Year
  Sex: Male

DRUGS (11)
  1. CISPLATIN [Suspect]
     Indication: NON-SMALL CELL LUNG CANCER
     Dosage: LAST DOSE:09DEC09
     Route: 042
     Dates: start: 20091209
  2. ALIMTA [Suspect]
     Indication: NON-SMALL CELL LUNG CANCER
     Dosage: LAST DOSE:09DEC09
     Route: 042
     Dates: start: 20091209
  3. FOLIC ACID [Concomitant]
     Dates: start: 20091126
  4. VITAMIN B-12 [Concomitant]
     Dates: start: 20091126, end: 20091126
  5. DEXAMETHASONE [Concomitant]
     Dates: start: 20091208, end: 20091208
  6. MORPHINE TARTRATE [Concomitant]
     Indication: PAIN
     Dates: start: 20091113
  7. SEVREDOL [Concomitant]
     Dates: start: 20091113
  8. PARACETAMOL [Concomitant]
     Indication: PAIN
  9. RANITIDINE [Concomitant]
     Indication: DYSPEPSIA
  10. SIMVASTATIN [Concomitant]
     Indication: PROPHYLAXIS
  11. OXYGEN [Concomitant]
     Dates: start: 20091224, end: 20091228

REACTIONS (3)
  - DYSPNOEA [None]
  - PNEUMONIA [None]
  - PULMONARY EMBOLISM [None]
